FAERS Safety Report 18544198 (Version 1)
Quarter: 2020Q4

REPORT INFORMATION
  Report Type: Spontaneous
  Country: PL (occurrence: PL)
  Receive Date: 20201125
  Receipt Date: 20201125
  Transmission Date: 20210114
  Serious: Yes (Hospitalization)
  Sender: FDA-Public Use
  Company Number: PL-ABBVIE-20K-129-3652510-00

PATIENT
  Sex: Male

DRUGS (2)
  1. VENCLYXTO [Suspect]
     Active Substance: VENETOCLAX
     Route: 048
     Dates: start: 20201115, end: 20201115
  2. VENCLYXTO [Suspect]
     Active Substance: VENETOCLAX
     Indication: PRODUCT USED FOR UNKNOWN INDICATION
     Dosage: DISCONTINUED AFTER THE FIRST DOSE
     Route: 048
     Dates: start: 20201113, end: 20201113

REACTIONS (5)
  - COVID-19 [Unknown]
  - Body temperature increased [Unknown]
  - Blood potassium increased [Recovered/Resolved]
  - Tumour lysis syndrome [Recovered/Resolved]
  - Blood phosphorus increased [Recovered/Resolved]

NARRATIVE: CASE EVENT DATE: 20201113
